FAERS Safety Report 5544075-5 (Version None)
Quarter: 2007Q4

REPORT INFORMATION
  Report Type: 
  Country: None (occurrence: None)
  Receive Date: 20071210
  Receipt Date: 20061122
  Transmission Date: 20080405
  Serious: No
  Sender: FDA-Public Use
  Company Number: US-AMGEN-KDL201271

PATIENT
  Sex: Female

DRUGS (2)
  1. ENBREL [Suspect]
     Indication: PSORIATIC ARTHROPATHY
     Route: 058
     Dates: start: 20061020
  2. ENBREL [Suspect]
     Indication: PSORIASIS

REACTIONS (3)
  - COUGH [None]
  - INJECTION SITE REACTION [None]
  - PHARYNGOLARYNGEAL PAIN [None]
